FAERS Safety Report 6831732-3 (Version None)
Quarter: 2010Q3

REPORT INFORMATION
  Report Type: 
  Country: None (occurrence: None)
  Receive Date: 20100706
  Receipt Date: 20100628
  Transmission Date: 20110219
  Serious: Yes (Death, Hospitalization)
  Sender: FDA-Public Use
  Company Number: B0662638A

PATIENT
  Age: 70 Year
  Sex: Female

DRUGS (28)
  1. CIPROFLOXACIN [Suspect]
     Indication: BACTERAEMIA
  2. METFORMIN HCL [Suspect]
     Indication: TYPE 2 DIABETES MELLITUS
     Dosage: ORAL
     Route: 048
  3. AMITRIPTYLINE HCL [Suspect]
     Indication: DEPRESSION
  4. CITALOPRAM HYDROBROMIDE [Suspect]
     Indication: DEPRESSION
  5. VERAPAMIL [Suspect]
     Indication: HYPERTENSION
  6. ENALAPRIL MALEATE [Suspect]
     Indication: HYPERTENSION
  7. ASPIRIN [Suspect]
     Indication: MYOCARDIAL ISCHAEMIA
  8. ASPIRIN [Suspect]
     Indication: HYPERTENSION
  9. SIMVASTATIN [Suspect]
     Indication: HYPERLIPIDAEMIA
  10. THEOPHYLLINE [Suspect]
     Indication: BRONCHITIS CHRONIC
  11. FRUSEMIDE [Suspect]
     Indication: HYPERTENSION
  12. OMEPRAZOLE [Suspect]
     Indication: PRODUCT USED FOR UNKNOWN INDICATION
  13. VANCOMYCIN [Suspect]
     Indication: BACTERAEMIA
  14. LEVOFLOXACIN [Suspect]
     Indication: BACTERAEMIA
  15. AMPICILLIN TRIHYDRATE [Suspect]
     Indication: BACTERAEMIA
  16. PIPERACILLIN SODIUM [Suspect]
     Indication: BACTERAEMIA
  17. AMIKACIN [Suspect]
     Indication: BACTERAEMIA
  18. HYDROCORTISONE [Suspect]
     Indication: TOXIC EPIDERMAL NECROLYSIS
  19. CEFTRIAXONE [Suspect]
     Indication: PNEUMONIA
  20. GLYBURIDE [Suspect]
     Indication: TYPE 2 DIABETES MELLITUS
     Dosage: ORAL
     Route: 048
  21. IMMUNE GLOBULIN INTRAVENOUS (HUMAN) [Suspect]
     Indication: PRODUCT USED FOR UNKNOWN INDICATION
     Dosage: INTRAVENOUS
     Route: 042
  22. TAZOBACTAM [Suspect]
  23. GLYBURIDE [Suspect]
  24. DORZOLAMIDE HYDROCHLORIDE [Suspect]
  25. DEXTROSE [Concomitant]
  26. MAGNESIUM SULFATE [Concomitant]
  27. LATANOPROST [Concomitant]
  28. OMEPRAZOLE [Concomitant]

REACTIONS (5)
  - ACUTE RESPIRATORY DISTRESS SYNDROME [None]
  - HAEMORRHAGE INTRACRANIAL [None]
  - HYPOGLYCAEMIA [None]
  - THROMBOCYTOPENIA [None]
  - TOXIC EPIDERMAL NECROLYSIS [None]
